FAERS Safety Report 13519549 (Version 3)
Quarter: 2017Q2

REPORT INFORMATION
  Report Type: Spontaneous
  Country: US (occurrence: US)
  Receive Date: 20170505
  Receipt Date: 20170516
  Transmission Date: 20170830
  Serious: Yes (Life-Threatening, Hospitalization, Disabling, Other)
  Sender: FDA-Public Use
  Company Number: US-009507513-1705USA001674

PATIENT
  Sex: Male

DRUGS (4)
  1. ZOMETA [Suspect]
     Active Substance: ZOLEDRONIC ACID
     Indication: PROPHYLAXIS
  2. VINCRISTINE [Suspect]
     Active Substance: VINCRISTINE
     Indication: PROPHYLAXIS
     Dosage: 2 MG PER METER SQUARED
  3. ZOLINZA [Suspect]
     Active Substance: VORINOSTAT
     Indication: PROPHYLAXIS
     Dosage: 200 MG, DAILY MONDAY THROUGH FRIDAY EVERY 3 WEEKS
     Route: 048
     Dates: start: 20161219
  4. ETOPOSIDE. [Suspect]
     Active Substance: ETOPOSIDE
     Indication: PROPHYLAXIS
     Dosage: 100 MG PER METER SQUARED, DAILY ON DAYS 1, 2 AND 3 EVERY THREE WEEKS

REACTIONS (4)
  - Thrombocytopenia [Not Recovered/Not Resolved]
  - Metastases to bone [Unknown]
  - Febrile neutropenia [Not Recovered/Not Resolved]
  - Neutropenia [Not Recovered/Not Resolved]
